FAERS Safety Report 5394158-8 (Version None)
Quarter: 2007Q3

REPORT INFORMATION
  Report Type: 
  Country: None (occurrence: None)
  Receive Date: 20070723
  Receipt Date: 20070710
  Transmission Date: 20080115
  Serious: Yes (Other)
  Sender: FDA-Public Use
  Company Number: GB-ROCHE-507173

PATIENT
  Age: 51 Year
  Sex: Female
  Weight: 120 kg

DRUGS (1)
  1. XENICAL [Suspect]
     Indication: OBESITY
     Route: 048
     Dates: start: 20070607

REACTIONS (3)
  - BLOOD PRESSURE INCREASED [None]
  - GASTRIC ULCER [None]
  - HIATUS HERNIA [None]
